FAERS Safety Report 11252206 (Version 1)
Quarter: 2015Q3

REPORT INFORMATION
  Report Type: Spontaneous
  Country: US (occurrence: US)
  Receive Date: 20150708
  Receipt Date: 20150708
  Transmission Date: 20151125
  Serious: No
  Sender: FDA-Public Use
  Company Number: US-ELI_LILLY_AND_COMPANY-US201305005527

PATIENT
  Sex: Male

DRUGS (8)
  1. OXYCONTIN [Concomitant]
     Active Substance: OXYCODONE HYDROCHLORIDE
  2. MIRAPEX [Concomitant]
     Active Substance: PRAMIPEXOLE DIHYDROCHLORIDE
  3. CARBIDOPA/LEVODOPA [Concomitant]
     Active Substance: CARBIDOPA\LEVODOPA
  4. PROZAC [Suspect]
     Active Substance: FLUOXETINE HYDROCHLORIDE
     Dosage: 1 DF, UNKNOWN
  5. DEPAKOTE [Concomitant]
     Active Substance: DIVALPROEX SODIUM
  6. REMERON [Concomitant]
     Active Substance: MIRTAZAPINE
  7. XANAX [Concomitant]
     Active Substance: ALPRAZOLAM
  8. LYRICA [Concomitant]
     Active Substance: PREGABALIN

REACTIONS (5)
  - Oedema [Unknown]
  - Spinal disorder [Unknown]
  - Peripheral swelling [Unknown]
  - Neuropathy peripheral [Unknown]
  - Parkinson^s disease [Unknown]
